FAERS Safety Report 17689559 (Version 1)
Quarter: 2020Q2

REPORT INFORMATION
  Report Type: Spontaneous
  Country: US (occurrence: US)
  Receive Date: 20200420
  Receipt Date: 20200420
  Transmission Date: 20200714
  Serious: Yes (Hospitalization, Other)
  Sender: FDA-Public Use
  Company Number: None

PATIENT
  Age: 52 Year
  Sex: Female

DRUGS (25)
  1. HUMIRA [Suspect]
     Active Substance: ADALIMUMAB
     Indication: RHEUMATOID ARTHRITIS
     Dosage: ?          OTHER DOSE:40MG/0.8ML;?
     Route: 059
     Dates: start: 20191018
  2. POT CL MICRO [Concomitant]
  3. TIZANIDINE. [Concomitant]
     Active Substance: TIZANIDINE
  4. NITROFURANTIN [Concomitant]
     Active Substance: NITROFURANTOIN
  5. CELECOXIB. [Concomitant]
     Active Substance: CELECOXIB
  6. CIPROFLOXACIN. [Concomitant]
     Active Substance: CIPROFLOXACIN
  7. HYDROCHLOROT [Concomitant]
     Active Substance: HYDROCHLOROTHIAZIDE
  8. POT CHLORIDE [Concomitant]
     Active Substance: POTASSIUM CHLORIDE
  9. AIMOVIG [Concomitant]
     Active Substance: ERENUMAB-AOOE
  10. ATORVASTATIN [Concomitant]
     Active Substance: ATORVASTATIN
  11. ELETRIPTAN. [Concomitant]
     Active Substance: ELETRIPTAN
  12. METOPROLOL SUC [Concomitant]
  13. CEPHALEXIN. [Concomitant]
     Active Substance: CEPHALEXIN
  14. AMITRIPTYLIN [Concomitant]
     Active Substance: AMITRIPTYLINE
  15. HYDROCO/APAP [Concomitant]
     Active Substance: ACETAMINOPHEN\HYDROCODONE
  16. LEFLUNOMIDE. [Concomitant]
     Active Substance: LEFLUNOMIDE
  17. ZONISAMIDE. [Concomitant]
     Active Substance: ZONISAMIDE
  18. GABAPENTIN. [Concomitant]
     Active Substance: GABAPENTIN
  19. NO DRUG NAME [Concomitant]
  20. ERYTHROMYCIN OIN [Concomitant]
  21. SOLIFENACIN [Concomitant]
     Active Substance: SOLIFENACIN
  22. CARISOPRODOL. [Concomitant]
     Active Substance: CARISOPRODOL
  23. TAMSULOSIN [Concomitant]
     Active Substance: TAMSULOSIN
  24. LOSARTAN POT [Concomitant]
     Active Substance: LOSARTAN POTASSIUM
  25. ONDANSETRON [Concomitant]
     Active Substance: ONDANSETRON

REACTIONS (1)
  - Cardiac pacemaker insertion [None]

NARRATIVE: CASE EVENT DATE: 20200407
